FAERS Safety Report 19081123 (Version 1)
Quarter: 2021Q2

REPORT INFORMATION
  Report Type: Spontaneous
  Country: BR (occurrence: BR)
  Receive Date: 20210401
  Receipt Date: 20210401
  Transmission Date: 20210717
  Serious: Yes (Hospitalization, Other)
  Sender: FDA-Public Use
  Company Number: BR-CHEPLA-C20211559

PATIENT
  Age: 8 Year
  Sex: Male

DRUGS (3)
  1. GANCICLOVIR. [Suspect]
     Active Substance: GANCICLOVIR
     Indication: CYTOMEGALOVIRUS INFECTION
     Dates: start: 2015
  2. GANCICLOVIR. [Suspect]
     Active Substance: GANCICLOVIR
     Indication: CYTOMEGALOVIRUS INFECTION
     Dates: start: 201510, end: 2015
  3. CEFEPIME [Suspect]
     Active Substance: CEFEPIME HYDROCHLORIDE
     Indication: CYTOMEGALOVIRUS INFECTION
     Dates: start: 201510

REACTIONS (8)
  - Abdominal pain upper [Unknown]
  - Hyperkalaemia [Unknown]
  - Vomiting [Unknown]
  - Nausea [Unknown]
  - Hyponatraemia [Unknown]
  - Hypoglycaemia [Recovered/Resolved]
  - Product use issue [Unknown]
  - Hypotension [Recovered/Resolved]

NARRATIVE: CASE EVENT DATE: 2015
